FAERS Safety Report 17822581 (Version 1)
Quarter: 2020Q2

REPORT INFORMATION
  Report Type: Report from Study
  Country: CI (occurrence: CI)
  Receive Date: 20200526
  Receipt Date: 20200526
  Transmission Date: 20200714
  Serious: Yes (Other)
  Sender: FDA-Public Use
  Company Number: CI-ROCHE-2606386

PATIENT

DRUGS (2)
  1. PEGINTERFERON ALFA-2A. [Suspect]
     Active Substance: PEGINTERFERON ALFA-2A
     Indication: HEPATITIS VIRAL
     Route: 065
  2. RIBAVIRIN. [Suspect]
     Active Substance: RIBAVIRIN
     Indication: HEPATITIS VIRAL
     Route: 065

REACTIONS (7)
  - Headache [Unknown]
  - Irritability [Unknown]
  - Pancytopenia [Unknown]
  - Myalgia [Unknown]
  - Palpitations [Unknown]
  - Skin reaction [Unknown]
  - Constipation [Unknown]
